FAERS Safety Report 19731044 (Version 1)
Quarter: 2021Q3

REPORT INFORMATION
  Report Type: Spontaneous
  Country: BH (occurrence: BH)
  Receive Date: 20210820
  Receipt Date: 20210820
  Transmission Date: 20211014
  Serious: Yes (Other)
  Sender: FDA-Public Use
  Company Number: BH-SA-2021SA271834

PATIENT
  Age: 37 Year
  Sex: Female

DRUGS (4)
  1. ACETYLSALICYLIC ACID [Suspect]
     Active Substance: ASPIRIN
     Indication: CYTOPENIA
     Dosage: 81 MG
  2. FOLIC ACID. [Concomitant]
     Active Substance: FOLIC ACID
     Indication: VITAMIN SUPPLEMENTATION
     Dosage: UNK
     Dates: start: 2017
  3. ENOXAPARIN SODIUM. [Suspect]
     Active Substance: ENOXAPARIN SODIUM
     Dosage: 40 MG
     Dates: start: 2017
  4. ECULIZUMAB [Concomitant]
     Active Substance: ECULIZUMAB
     Indication: PAROXYSMAL NOCTURNAL HAEMOGLOBINURIA
     Dosage: 600 MG

REACTIONS (6)
  - Myelosuppression [Unknown]
  - Maternal exposure during pregnancy [Unknown]
  - Haemolysis [Unknown]
  - Heparin-induced thrombocytopenia [Unknown]
  - Vaginal haemorrhage [Unknown]
  - Premature rupture of membranes [Unknown]
